FAERS Safety Report 4862869-6 (Version None)
Quarter: 2005Q4

REPORT INFORMATION
  Report Type: 
  Country: None (occurrence: None)
  Receive Date: 20051221
  Receipt Date: 20051107
  Transmission Date: 20060501
  Serious: Yes (Other)
  Sender: FDA-Public Use
  Company Number: NZ-NOVOPROD-248382

PATIENT
  Age: 60 Year
  Sex: Female
  Weight: 159 kg

DRUGS (7)
  1. NOVORAPID PENFILL [Suspect]
     Indication: INSULIN-REQUIRING TYPE II DIABETES MELLITUS
     Dates: start: 20051011, end: 20051025
  2. PROTAPHANE [Concomitant]
     Indication: INSULIN-REQUIRING TYPE II DIABETES MELLITUS
     Dates: start: 20030101
  3. PENMIX [Concomitant]
     Dates: start: 20051001, end: 20051011
  4. BETALOC [Concomitant]
  5. CAPTOPRIL [Concomitant]
  6. FRUSEMIDE [Concomitant]
  7. ASPIRIN [Concomitant]

REACTIONS (2)
  - ABDOMINAL PAIN [None]
  - ABDOMINAL PAIN UPPER [None]
